FAERS Safety Report 15491623 (Version 1)
Quarter: 2018Q4

REPORT INFORMATION
  Report Type: Spontaneous
  Country: FR (occurrence: FR)
  Receive Date: 20181012
  Receipt Date: 20181012
  Transmission Date: 20190205
  Serious: Yes (Other)
  Sender: FDA-Public Use
  Company Number: FR-BAUSCH-BL-2018-027190

PATIENT
  Age: 68 Year
  Sex: Male

DRUGS (4)
  1. ACETYLSALICYLIC ACID [Concomitant]
     Active Substance: ASPIRIN
     Indication: PRODUCT USED FOR UNKNOWN INDICATION
     Dates: start: 2007
  2. HYDROXYCARBAMIDE [Interacting]
     Active Substance: HYDROXYUREA
     Indication: MYELOPROLIFERATIVE NEOPLASM
     Route: 048
     Dates: start: 2007
  3. HYDROXYCARBAMIDE [Interacting]
     Active Substance: HYDROXYUREA
     Dosage: ALTERNATING ONE DAY OUT OF TWO
     Route: 048
  4. ALDARA [Suspect]
     Active Substance: IMIQUIMOD
     Indication: BOWEN^S DISEASE
     Dosage: RECEIVED 15 SACHETS/WEEK INSTEAD OF 5 SACHETS/WEEK
     Route: 061
     Dates: start: 2016

REACTIONS (5)
  - Product dispensing error [Recovered/Resolved]
  - Leukopenia [Recovered/Resolved]
  - Overdose [Recovered/Resolved]
  - Drug interaction [Recovered/Resolved]
  - Thrombocytopenia [Recovered/Resolved]

NARRATIVE: CASE EVENT DATE: 2016
